FAERS Safety Report 4747577-4 (Version None)
Quarter: 2005Q3

REPORT INFORMATION
  Report Type: 
  Country: None (occurrence: None)
  Receive Date: 20050818
  Receipt Date: 20041004
  Transmission Date: 20060218
  Serious: No
  Sender: FDA-Public Use
  Company Number: US-BRISTOL-MYERS SQUIBB COMPANY-12721007

PATIENT
  Age: 32 Year
  Sex: Male

DRUGS (2)
  1. TEQUIN [Suspect]
     Indication: PROSTATITIS
     Route: 048
     Dates: start: 20040927, end: 20041004
  2. FLOMAX [Concomitant]

REACTIONS (2)
  - ARTHRALGIA [None]
  - TENDON DISORDER [None]
